FAERS Safety Report 10462235 (Version 2)
Quarter: 2014Q3

REPORT INFORMATION
  Report Type: Spontaneous
  Country: US (occurrence: US)
  Receive Date: 20140918
  Receipt Date: 20140918
  Transmission Date: 20150326
  Serious: Yes (Hospitalization)
  Sender: FDA-Public Use
  Company Number: US-GLAXOSMITHKLINE-B0698304A

PATIENT
  Sex: Female

DRUGS (1)
  1. AVANDIA [Suspect]
     Active Substance: ROSIGLITAZONE MALEATE
     Indication: DIABETES MELLITUS
     Dosage: 4MG PER DAY
     Route: 048
     Dates: start: 2002, end: 2007

REACTIONS (6)
  - Weight increased [Unknown]
  - Dyspnoea [Unknown]
  - Chest pain [Unknown]
  - Peripheral swelling [Unknown]
  - Angina unstable [Not Recovered/Not Resolved]
  - Hypertension [Unknown]
